FAERS Safety Report 7319302-4 (Version None)
Quarter: 2011Q1

REPORT INFORMATION
  Report Type: 
  Country: None (occurrence: None)
  Receive Date: 20110228
  Receipt Date: 20100121
  Transmission Date: 20110831
  Serious: No
  Sender: FDA-Public Use
  Company Number: A0840741A

PATIENT
  Age: 57 Year
  Sex: Male

DRUGS (2)
  1. LEXAPRO [Concomitant]
  2. LAMICTAL [Suspect]
     Indication: EPILEPSY
     Dosage: 50MG TWICE PER DAY
     Route: 048
     Dates: start: 20090501

REACTIONS (2)
  - SOCIAL AVOIDANT BEHAVIOUR [None]
  - MOOD ALTERED [None]
